FAERS Safety Report 15939447 (Version 4)
Quarter: 2019Q1

REPORT INFORMATION
  Report Type: Spontaneous
  Country: RO (occurrence: RO)
  Receive Date: 20190208
  Receipt Date: 20190328
  Transmission Date: 20190417
  Serious: Yes (Death, Life-Threatening, Hospitalization, Other)
  Sender: FDA-Public Use
  Company Number: RO-MYLANLABS-2019M1011218

PATIENT
  Age: 56 Month
  Sex: Male

DRUGS (11)
  1. CALCIUM CARBONATE. [Concomitant]
     Active Substance: CALCIUM CARBONATE
     Indication: END STAGE RENAL DISEASE
     Dosage: 1000 MILLIGRAM, Q8H (1000 MG, TID)
  2. DEXAMETHASONE. [Suspect]
     Active Substance: DEXAMETHASONE
     Indication: CEREBRAL OEDEMA MANAGEMENT
     Dosage: UNK
  3. DOPAMINE HYDROCHLORIDE. [Suspect]
     Active Substance: DOPAMINE HYDROCHLORIDE
     Indication: CARDIAC FAILURE
     Dosage: UNK
  4. OXYGEN. [Suspect]
     Active Substance: OXYGEN
     Indication: HYPOXIA
     Dosage: UNK
  5. CALCITRIOL. [Concomitant]
     Active Substance: CALCITRIOL
     Indication: END STAGE RENAL DISEASE
     Dosage: 0.5 MICROGRAM, QD
  6. ERITROPOYETINA [Concomitant]
     Active Substance: ERYTHROPOIETIN
     Indication: END STAGE RENAL DISEASE
     Dosage: 1000 MICROLITER, Q3W
  7. FOLIC ACID. [Concomitant]
     Active Substance: FOLIC ACID
     Indication: END STAGE RENAL DISEASE
     Dosage: 5 MILLIGRAM, QD
  8. DOBUTAMINE [Suspect]
     Active Substance: DOBUTAMINE\DOBUTAMINE HYDROCHLORIDE
     Indication: CARDIAC FAILURE
     Dosage: UNK
  9. DIAZEPAM. [Suspect]
     Active Substance: DIAZEPAM
     Indication: SEIZURE
     Dosage: UNK
  10. DIAZEPAM. [Suspect]
     Active Substance: DIAZEPAM
     Indication: SEIZURE PROPHYLAXIS
  11. IRON [Concomitant]
     Active Substance: IRON
     Indication: END STAGE RENAL DISEASE
     Dosage: 20 MILLIGRAM, QD

REACTIONS (9)
  - Drug ineffective [Not Recovered/Not Resolved]
  - Hyperparathyroidism secondary [Unknown]
  - Cardio-respiratory arrest [Unknown]
  - Chronic kidney disease-mineral and bone disorder [Unknown]
  - Lung disorder [Unknown]
  - Pulmonary calcification [Fatal]
  - Hypoxia [Unknown]
  - Calciphylaxis [Fatal]
  - Seizure [Unknown]
